FAERS Safety Report 8394410-8 (Version None)
Quarter: 2012Q2

REPORT INFORMATION
  Report Type: 
  Country: None (occurrence: None)
  Receive Date: 20120530
  Receipt Date: 20120523
  Transmission Date: 20120825
  Serious: Yes (Hospitalization, Other)
  Sender: FDA-Public Use
  Company Number: PHHY2012IT044423

PATIENT
  Sex: Male

DRUGS (3)
  1. CLOZAPINE [Suspect]
     Indication: MAJOR DEPRESSION
     Dosage: 37.5 MG
     Route: 048
     Dates: start: 20110201, end: 20120106
  2. SINEMET [Suspect]
     Dosage: 3 DF
     Dates: start: 20110201
  3. CYMBALTA [Suspect]
     Dosage: 1 DF, UNK
     Dates: start: 20100101

REACTIONS (2)
  - TARDIVE DYSKINESIA [None]
  - MENINGIOMA [None]
